FAERS Safety Report 8227373-6 (Version None)
Quarter: 2012Q1

REPORT INFORMATION
  Report Type: 
  Country: None (occurrence: None)
  Receive Date: 20120322
  Receipt Date: 20120316
  Transmission Date: 20120608
  Serious: Yes (Hospitalization)
  Sender: FDA-Public Use
  Company Number: US-VERTEX PHARMACEUTICALS INC.-AE-2012-003918

PATIENT
  Sex: Male

DRUGS (5)
  1. RIBASPHERE [Concomitant]
     Route: 048
     Dates: start: 20120301
  2. RIBASPHERE [Concomitant]
     Route: 048
  3. PEGASYS [Concomitant]
     Indication: HEPATITIS C
     Route: 058
     Dates: start: 20120105
  4. INCIVEK [Suspect]
     Indication: HEPATITIS C
     Route: 048
     Dates: start: 20120105
  5. RIBASPHERE [Concomitant]
     Indication: HEPATITIS C
     Route: 048
     Dates: start: 20120105, end: 20120201

REACTIONS (3)
  - ANAEMIA [None]
  - CELLULITIS [None]
  - RASH GENERALISED [None]
